FAERS Safety Report 4750440-6 (Version None)
Quarter: 2005Q3

REPORT INFORMATION
  Report Type: 
  Country: None (occurrence: None)
  Receive Date: 20050823
  Receipt Date: 20050817
  Transmission Date: 20060218
  Serious: Yes (Life-Threatening, Hospitalization)
  Sender: FDA-Public Use
  Company Number: PHNR2005AU01242

PATIENT
  Age: 68 Year
  Weight: 35 kg

DRUGS (5)
  1. ENBREL [Suspect]
     Indication: RHEUMATOID ARTHRITIS
     Dosage: 25 MG, DAILY, INJECTION
     Route: 058
     Dates: start: 20031215, end: 20040515
  2. DEPO-MEDROL [Concomitant]
  3. TRAMADOL HCL [Concomitant]
  4. AMILORIDE HCL [Concomitant]
  5. ZOMETA [Suspect]
     Dosage: DOSE UNSPECIFIED
     Dates: start: 20040223, end: 20040101

REACTIONS (6)
  - ASTHENIA [None]
  - BIOPSY MUSCLE ABNORMAL [None]
  - BLOOD CREATINE PHOSPHOKINASE INCREASED [None]
  - CACHEXIA [None]
  - POLYMYOSITIS [None]
  - WEIGHT DECREASED [None]
